FAERS Safety Report 14823166 (Version 6)
Quarter: 2018Q3

REPORT INFORMATION
  Report Type: Report from Study
  Country: US (occurrence: US)
  Receive Date: 20180427
  Receipt Date: 20180913
  Transmission Date: 20181010
  Serious: Yes (Hospitalization)
  Sender: FDA-Public Use
  Company Number: US-ACTELION-A-NJ2018-166436

PATIENT
  Age: 45 Year
  Sex: Female
  Weight: 75.74 kg

DRUGS (5)
  1. ARIXTRA [Concomitant]
     Active Substance: FONDAPARINUX SODIUM
  2. VELETRI [Suspect]
     Active Substance: EPOPROSTENOL
     Dosage: 40 NG/KG, PER MIN
     Route: 042
  3. VELETRI [Suspect]
     Active Substance: EPOPROSTENOL
     Indication: PULMONARY HYPERTENSION
     Dosage: 39 NG/KG, PER MIN
     Route: 042
  4. ADEMPAS [Concomitant]
     Active Substance: RIOCIGUAT
  5. OPSUMIT [Suspect]
     Active Substance: MACITENTAN
     Indication: PULMONARY HYPERTENSION
     Dosage: 10 MG, QD
     Route: 048

REACTIONS (19)
  - Haematocrit decreased [Unknown]
  - Anaemia [Unknown]
  - Haematochezia [Unknown]
  - Pain [Not Recovered/Not Resolved]
  - Pain in jaw [Unknown]
  - Weight increased [Unknown]
  - Angioplasty [Unknown]
  - Dehydration [Unknown]
  - Haemorrhoids [Not Recovered/Not Resolved]
  - Weight decreased [Unknown]
  - Lower respiratory tract infection [Unknown]
  - Fatigue [Unknown]
  - Post procedural complication [Unknown]
  - Influenza [Unknown]
  - Cardiac failure acute [Unknown]
  - Haemoglobin decreased [Unknown]
  - Malaise [Unknown]
  - Swelling [Unknown]
  - Thrombosis [Unknown]

NARRATIVE: CASE EVENT DATE: 20180425
